FAERS Safety Report 17613225 (Version 1)
Quarter: 2020Q2

REPORT INFORMATION
  Report Type: Spontaneous
  Country: US (occurrence: US)
  Receive Date: 20200402
  Receipt Date: 20200402
  Transmission Date: 20200713
  Serious: No
  Sender: FDA-Public Use
  Company Number: US-JNJFOC-20200339300

PATIENT
  Age: 40 Year
  Sex: Male
  Weight: 88.53 kg

DRUGS (2)
  1. MENS ROGAINE EXTRA STRENGTH [Suspect]
     Active Substance: MINOXIDIL
     Route: 065
  2. MENS ROGAINE EXTRA STRENGTH [Suspect]
     Active Substance: MINOXIDIL
     Indication: ALOPECIA
     Dosage: DOSE:AS DIRECTED AND FREQUENCY: ONE TIME.?THE PRODUCT WAS LAST ADMINISTERED ON 20/MAR/2020.
     Route: 061
     Dates: start: 20200319

REACTIONS (2)
  - Inappropriate schedule of product administration [Unknown]
  - Application site vesicles [Recovered/Resolved]

NARRATIVE: CASE EVENT DATE: 20200319
